FAERS Safety Report 6631129-5 (Version None)
Quarter: 2010Q1

REPORT INFORMATION
  Report Type: 
  Country: None (occurrence: None)
  Receive Date: 20100311
  Receipt Date: 20100302
  Transmission Date: 20100710
  Serious: Yes (Other)
  Sender: FDA-Public Use
  Company Number: CA-ABBOTT-10P-028-0625496-00

PATIENT
  Sex: Male

DRUGS (7)
  1. HUMIRA [Suspect]
     Indication: PSORIATIC ARTHROPATHY
     Route: 058
     Dates: start: 20081129
  2. METHOTREXATE [Concomitant]
     Indication: DRUG USE FOR UNKNOWN INDICATION
     Route: 058
  3. CELEBREX [Concomitant]
     Indication: INFLAMMATION
     Route: 048
  4. CYTOTEC [Concomitant]
     Indication: DRUG USE FOR UNKNOWN INDICATION
     Route: 048
  5. NEXIUM [Concomitant]
     Indication: DRUG USE FOR UNKNOWN INDICATION
     Route: 048
  6. RATIO-AMLODIPINE [Concomitant]
     Indication: HYPERTENSION
     Route: 048
  7. APO-CILAZAPRIL-HCTZ [Concomitant]
     Indication: HYPERTENSION
     Dosage: 5/12.5MG
     Route: 048

REACTIONS (2)
  - INGUINAL HERNIA [None]
  - UMBILICAL HERNIA [None]
